FAERS Safety Report 8506965-0 (Version None)
Quarter: 2012Q2

REPORT INFORMATION
  Report Type: 
  Country: None (occurrence: None)
  Receive Date: 20120628
  Receipt Date: 20120621
  Transmission Date: 20120825
  Serious: Yes (Hospitalization, Other)
  Sender: FDA-Public Use
  Company Number: WAES 1205USA02688

PATIENT
  Age: 77 Year
  Sex: Male

DRUGS (21)
  1. PANTOPRAZOLE [Concomitant]
  2. TRANSIPEG [Concomitant]
  3. POTASSIUM CHLORIDE [Concomitant]
  4. LYRICA [Concomitant]
  5. DECADRON PHOSPHATE [Suspect]
     Indication: MULTIPLE MYELOMA
     Dates: start: 20111213
  6. LEUCOVORIN CALCIUM [Concomitant]
  7. SULFADIMETHOXINE/TRIMETHOPRIM [Concomitant]
  8. INJ ELOTUZUMAB [Suspect]
     Indication: MULTIPLE MYELOMA
     Dosage: 750 MG IV
     Route: 042
     Dates: start: 20111213, end: 20120131
  9. OXYCONTIN [Concomitant]
  10. DECADRON [Suspect]
     Indication: MULTIPLE MYELOMA
     Dosage: 28 MG/DAILY PO
     Route: 048
     Dates: start: 20111213, end: 20120130
  11. IMOVANE [Concomitant]
  12. DILTIAZEM HCL [Concomitant]
  13. VALACYCLOVIR HYDROCHLORIDE [Concomitant]
  14. ECONAZOLE [Concomitant]
  15. LENALIDOMIDE [Suspect]
     Indication: MULTIPLE MYELOMA
     Dosage: 25 MG/DAILY PO
     Route: 048
     Dates: start: 20111213, end: 20120130
  16. PREVISCAN [Concomitant]
  17. MICONAZOLE [Concomitant]
  18. BUMETANIDE [Concomitant]
  19. PHENOXYMETHYL PENICILLIN [Concomitant]
  20. OXYCODONE HCL [Concomitant]
  21. ALBUTEROL [Concomitant]

REACTIONS (3)
  - CARDIAC FAILURE [None]
  - ACCIDENTAL OVERDOSE [None]
  - CHRONIC LYMPHOCYTIC LEUKAEMIA [None]
